FAERS Safety Report 7579944-8 (Version None)
Quarter: 2011Q2

REPORT INFORMATION
  Report Type: 
  Country: None (occurrence: None)
  Receive Date: 20110622
  Receipt Date: 20110607
  Transmission Date: 20111010
  Serious: Yes (Other)
  Sender: FDA-Public Use
  Company Number: 2011AP001176

PATIENT
  Age: 43 Year
  Sex: Male

DRUGS (15)
  1. IRBESARTAN (IRBESARTAN) [Concomitant]
  2. DARUNAVIR HYDRATE [Suspect]
     Indication: HIV INFECTION
     Dosage: 800 MG, QD
     Dates: start: 20070101, end: 20070101
  3. RITONAVIR [Suspect]
     Indication: HIV INFECTION
     Dosage: 100 MG, QD
     Dates: start: 20070101, end: 20070101
  4. DILTIAZEM [Concomitant]
  5. CYCLOPHOSPHAMIDE [Concomitant]
  6. DOXORUBICIN HCL [Concomitant]
  7. ETOPOSIDE [Concomitant]
  8. PERINDOPRIL ERBUMINE [Suspect]
     Indication: HYPERTENSION
     Dates: start: 20080101, end: 20080101
  9. ANTIVIRALS (ANTIVIRALS) [Concomitant]
  10. RAMIPRIL [Concomitant]
  11. PROPRANOLOL [Concomitant]
  12. BENDROFLUMETHIAZIDE (BENDROFLUMETHIAZIDE) [Concomitant]
  13. EMTRICITABINE [Concomitant]
  14. TENOFOVIR DISOPROXIL FUMARATE [Concomitant]
  15. MARAVIROC (MARAVIROC) [Concomitant]

REACTIONS (5)
  - DRUG LEVEL INCREASED [None]
  - BLOOD PRESSURE INCREASED [None]
  - RENAL IMPAIRMENT [None]
  - DRUG INTERACTION [None]
  - LIPIDS INCREASED [None]
